FAERS Safety Report 18919066 (Version 2)
Quarter: 2021Q1

REPORT INFORMATION
  Report Type: Report from Study
  Country: US (occurrence: US)
  Receive Date: 20210220
  Receipt Date: 20210324
  Transmission Date: 20210420
  Serious: No
  Sender: FDA-Public Use
  Company Number: NVSC2021US034025

PATIENT
  Age: 69 Year
  Sex: Female

DRUGS (4)
  1. ENTRESTO [Suspect]
     Active Substance: SACUBITRIL\VALSARTAN
     Dosage: UNK UNK, BID (INCREASED DOSE)
     Route: 048
  2. METOPROLOL. [Concomitant]
     Active Substance: METOPROLOL
     Dosage: 50 MG, BID
     Route: 065
  3. METOPROLOL. [Concomitant]
     Active Substance: METOPROLOL
     Indication: PRODUCT USED FOR UNKNOWN INDICATION
     Dosage: UNK
     Route: 065
  4. ENTRESTO [Suspect]
     Active Substance: SACUBITRIL\VALSARTAN
     Indication: PRODUCT USED FOR UNKNOWN INDICATION
     Dosage: UNK UNK, BID
     Route: 048

REACTIONS (7)
  - Throat clearing [Unknown]
  - Distractibility [Unknown]
  - Blood sodium decreased [Recovering/Resolving]
  - Rhinorrhoea [Unknown]
  - Memory impairment [Unknown]
  - Cough [Unknown]
  - Inappropriate schedule of product administration [Unknown]
